FAERS Safety Report 11789046 (Version 2)
Quarter: 2016Q1

REPORT INFORMATION
  Report Type: Spontaneous
  Country: US (occurrence: US)
  Receive Date: 20151201
  Receipt Date: 20160201
  Transmission Date: 20160525
  Serious: No
  Sender: FDA-Public Use
  Company Number: US-009507513-1511USA010058

PATIENT
  Age: 8 Year
  Sex: Female

DRUGS (4)
  1. METHYLPREDNISOLONE SODIUM SUCCINATE. [Suspect]
     Active Substance: METHYLPREDNISOLONE SODIUM SUCCINATE
     Indication: PYOGENIC STERILE ARTHRITIS PYODERMA GANGRENOSUM AND ACNE SYNDROME
     Dosage: PULSES
  2. ADALIMUMAB [Suspect]
     Active Substance: ADALIMUMAB
     Indication: PYOGENIC STERILE ARTHRITIS PYODERMA GANGRENOSUM AND ACNE SYNDROME
     Dosage: 20 MG, EVERY 14 DAYS
  3. INFLIXIMAB [Suspect]
     Active Substance: INFLIXIMAB
     Indication: PYOGENIC STERILE ARTHRITIS PYODERMA GANGRENOSUM AND ACNE SYNDROME
  4. ETANERCEPT [Suspect]
     Active Substance: ETANERCEPT
     Dosage: 2MG/KG/QW

REACTIONS (2)
  - Drug ineffective [Recovered/Resolved]
  - Urticaria [Recovered/Resolved]
